FAERS Safety Report 5809509-7 (Version None)
Quarter: 2008Q3

REPORT INFORMATION
  Report Type: 
  Country: None (occurrence: None)
  Receive Date: 20080715
  Receipt Date: 20080703
  Transmission Date: 20090109
  Serious: Yes (Death)
  Sender: FDA-Public Use
  Company Number: DE-ELI_LILLY_AND_COMPANY-DE200806005264

PATIENT
  Sex: Male

DRUGS (5)
  1. CIALIS [Suspect]
     Dosage: 20 MG, UNKNOWN
     Route: 065
  2. RAMIPRIL [Concomitant]
     Dosage: UNK, UNK
     Route: 065
     Dates: start: 20040101
  3. NITRENDIPIN [Concomitant]
     Dosage: 10 MG, 2/D
     Route: 065
     Dates: start: 20040101
  4. SIMVASTATIN [Concomitant]
     Dosage: 20 MG, UNK
     Route: 065
     Dates: start: 20040101
  5. DICLOFENAC [Concomitant]
     Dosage: 75 MG, DAILY (1/D)
     Route: 065

REACTIONS (1)
  - DEATH [None]
